FAERS Safety Report 5641839-4 (Version None)
Quarter: 2008Q1

REPORT INFORMATION
  Report Type: 
  Country: None (occurrence: None)
  Receive Date: 20080131
  Receipt Date: 20071109
  Transmission Date: 20080703
  Serious: Yes (Hospitalization)
  Sender: FDA-Public Use
  Company Number: 163-21880-07110717

PATIENT
  Age: 90 Year
  Sex: Female

DRUGS (3)
  1. REVLIMID [Suspect]
     Indication: MYELODYSPLASTIC SYNDROME
     Dosage: 5 MG, DAILY, ORAL ; ORAL ; ORAL
     Route: 048
     Dates: start: 20060227, end: 20060301
  2. REVLIMID [Suspect]
     Indication: MYELODYSPLASTIC SYNDROME
     Dosage: 5 MG, DAILY, ORAL ; ORAL ; ORAL
     Route: 048
     Dates: start: 20060328, end: 20071001
  3. REVLIMID [Suspect]
     Indication: MYELODYSPLASTIC SYNDROME
     Dosage: 5 MG, DAILY, ORAL ; ORAL ; ORAL
     Route: 048
     Dates: start: 20071107

REACTIONS (2)
  - LABORATORY TEST ABNORMAL [None]
  - PNEUMONIA [None]
